FAERS Safety Report 10229327 (Version 3)
Quarter: 2015Q2

REPORT INFORMATION
  Report Type: Report from Study
  Country: AU (occurrence: AU)
  Receive Date: 20140611
  Receipt Date: 20150422
  Transmission Date: 20150821
  Serious: Yes (Hospitalization)
  Sender: FDA-Public Use
  Company Number: AU-ROCHE-1243639

PATIENT
  Age: 45 Year
  Sex: Male
  Weight: 67.1 kg

DRUGS (16)
  1. OBINUTUZUMAB [Suspect]
     Active Substance: OBINUTUZUMAB
     Dosage: VOLUME OF LAST OBINUTUZUMAB TAKEN 250 ML AT A CONCENTRATION OF 4 MG/ML, DATE OF MOST RECENT DOSE OF
     Route: 042
  2. PARACETAMOL [Concomitant]
     Active Substance: ACETAMINOPHEN
     Indication: HEADACHE
  3. BENDAMUSTINE [Suspect]
     Active Substance: BENDAMUSTINE
     Indication: NON-HODGKIN^S LYMPHOMA UNSPECIFIED HISTOLOGY INDOLENT
     Dosage: DOSE OF LAST BENDAMUSTINE TAKEN: 160 MG?DATE OF MOST RECENT DOSE OF BENDAMUSTINE PRIOR TO AE ONSET:
     Route: 042
     Dates: start: 20120801
  4. LORATADINE. [Concomitant]
     Active Substance: LORATADINE
     Indication: PROPHYLAXIS
  5. CHLORSIG [Concomitant]
     Active Substance: CHLORAMPHENICOL
     Indication: EYE INFECTION
     Route: 065
     Dates: start: 20130628, end: 20130629
  6. FILGRASTIM [Concomitant]
     Active Substance: FILGRASTIM
     Indication: NEUTROPENIA
     Route: 065
     Dates: start: 20130612, end: 20130616
  7. CODEINE LINCTUS [Concomitant]
     Active Substance: CHLOROFORM\CODEINE PHOSPHATE\DRIMIA MARITIMA BULB
     Indication: PRODUCTIVE COUGH
     Dosage: 5-10 ML
     Route: 065
     Dates: start: 20130630, end: 20130703
  8. FILGRASTIM [Concomitant]
     Active Substance: FILGRASTIM
     Route: 065
     Dates: start: 20130630, end: 20130703
  9. PARACETAMOL [Concomitant]
     Active Substance: ACETAMINOPHEN
     Indication: INFUSION RELATED REACTION
     Dosage: PRN
     Route: 065
     Dates: start: 20130630, end: 20130704
  10. PARACETAMOL [Concomitant]
     Active Substance: ACETAMINOPHEN
     Indication: PROPHYLAXIS
  11. LORATADINE. [Concomitant]
     Active Substance: LORATADINE
     Indication: INFUSION RELATED REACTION
     Route: 065
     Dates: start: 20120801
  12. METOCLOPRAMIDE. [Concomitant]
     Active Substance: METOCLOPRAMIDE
     Indication: VOMITING
     Dosage: 10-20MG PRN
     Route: 065
     Dates: start: 20130703, end: 20130703
  13. ENOXAPARIN [Concomitant]
     Active Substance: ENOXAPARIN
     Indication: THROMBOSIS PROPHYLAXIS
     Route: 065
     Dates: start: 20130701, end: 20130703
  14. OBINUTUZUMAB [Suspect]
     Active Substance: OBINUTUZUMAB
     Indication: NON-HODGKIN^S LYMPHOMA UNSPECIFIED HISTOLOGY INDOLENT
     Dosage: DAYS 1, 8 AND 15 OF CYCLE 1 AS PER THE PROTOCOL.
     Route: 042
     Dates: start: 20120801
  15. PARACETAMOL [Concomitant]
     Active Substance: ACETAMINOPHEN
     Indication: PYREXIA
     Route: 065
     Dates: start: 20120801
  16. COLOXYL + SENNA [Concomitant]
     Indication: CONSTIPATION
     Route: 065
     Dates: start: 20130703, end: 20130703

REACTIONS (1)
  - Febrile neutropenia [Recovered/Resolved]

NARRATIVE: CASE EVENT DATE: 20130630
